FAERS Safety Report 22135855 (Version 1)
Quarter: 2023Q1

REPORT INFORMATION
  Report Type: Spontaneous
  Country: PL (occurrence: None)
  Receive Date: 20230324
  Receipt Date: 20230324
  Transmission Date: 20230418
  Serious: Yes (Other)
  Sender: FDA-Public Use
  Company Number: 2023A064102

PATIENT
  Age: 30 Year
  Sex: Female

DRUGS (4)
  1. FULVESTRANT [Suspect]
     Active Substance: FULVESTRANT
     Indication: Hormone receptor positive HER2 negative breast cancer
     Dosage: UNK
     Dates: start: 20220922, end: 20221024
  2. KISQALI [Suspect]
     Active Substance: RIBOCICLIB
     Indication: Hormone receptor positive HER2 negative breast cancer
     Dosage: UNK (4 CYCLE)
     Dates: start: 20221202, end: 20230220
  3. KISQALI [Suspect]
     Active Substance: RIBOCICLIB
     Indication: Hormone receptor positive HER2 negative breast cancer
     Dosage: UNK
     Dates: start: 20201104
  4. KISQALI [Suspect]
     Active Substance: RIBOCICLIB
     Indication: Hormone receptor positive HER2 negative breast cancer
     Dosage: 400 MG (3RD CYCLE OF RIBOCICLIB)

REACTIONS (6)
  - Malignant neoplasm progression [Unknown]
  - Cerebellar tumour [Unknown]
  - Hormone receptor positive HER2 negative breast cancer [Unknown]
  - Nausea [Unknown]
  - Headache [Unknown]
  - Neutropenia [Unknown]

NARRATIVE: CASE EVENT DATE: 20220620
